FAERS Safety Report 7673526-5 (Version None)
Quarter: 2011Q3

REPORT INFORMATION
  Report Type: 
  Country: None (occurrence: None)
  Receive Date: 20110804
  Receipt Date: 20110722
  Transmission Date: 20111222
  Serious: Yes (Death, Other)
  Sender: FDA-Public Use
  Company Number: 991162

PATIENT
  Age: 57 Year
  Sex: Female

DRUGS (8)
  1. CAPECITABINE [Suspect]
     Indication: RECTAL CANCER METASTATIC
     Dosage: 1700 MG MILLIGRAM(S), ORAL
     Route: 048
     Dates: start: 20110316, end: 20110427
  2. OXALIPLATIN [Suspect]
     Indication: RECTAL CANCER METASTATIC
     Dosage: 220 MG MILLIGRAM(S), (3 WEEK) INTRAVENOUS
     Route: 042
     Dates: start: 20110316, end: 20110427
  3. PROCHLORPERAZINE [Concomitant]
  4. AVASTIN [Suspect]
     Indication: RECTAL CANCER METASTATIC
     Dosage: 475 MG MILLIGRAM(S), (3 WEEK), INTRAVENOUS
     Route: 042
     Dates: start: 20110406, end: 20110427
  5. ONDANSETRON [Concomitant]
  6. (CYCLIZINE) [Concomitant]
  7. DEXAMETHASONE [Concomitant]
  8. OMEPRAZOLE [Concomitant]

REACTIONS (4)
  - CEREBRAL INFARCTION [None]
  - CEREBROVASCULAR ACCIDENT [None]
  - BONE MARROW FAILURE [None]
  - ORAL CANDIDIASIS [None]
